FAERS Safety Report 23963597 (Version 1)
Quarter: 2024Q2

REPORT INFORMATION
  Report Type: Spontaneous
  Country: RO (occurrence: RO)
  Receive Date: 20240611
  Receipt Date: 20240611
  Transmission Date: 20240716
  Serious: Yes (Disabling, Other)
  Sender: FDA-Public Use
  Company Number: RO-SA-SAC20240603000855

PATIENT
  Age: 40 Year
  Sex: Female

DRUGS (4)
  1. LEFLUNOMIDE [Suspect]
     Active Substance: LEFLUNOMIDE
     Indication: Product used for unknown indication
     Dosage: 20 MG, QD
     Route: 065
     Dates: start: 2017, end: 2019
  2. METHOTREXATE [Suspect]
     Active Substance: METHOTREXATE
     Indication: Hypothyroidic goitre
     Dosage: 20 MG, QW
     Route: 065
     Dates: start: 201207, end: 2017
  3. METHOTREXATE [Suspect]
     Active Substance: METHOTREXATE
     Dosage: 15-10MG, QW
     Route: 065
     Dates: start: 2019
  4. PLAQUENIL [Suspect]
     Active Substance: HYDROXYCHLOROQUINE SULFATE
     Indication: Hypothyroidic goitre
     Dosage: 400 MG, QD
     Route: 065
     Dates: start: 201207

REACTIONS (11)
  - Disability [Unknown]
  - Polyarthritis [Unknown]
  - Morning sickness [Unknown]
  - Butterfly rash [Unknown]
  - Disturbance in attention [Unknown]
  - Weight decreased [Unknown]
  - Photosensitivity reaction [Unknown]
  - Arthralgia [Unknown]
  - Asthenia [Unknown]
  - Nausea [Unknown]
  - Dizziness [Unknown]

NARRATIVE: CASE EVENT DATE: 20170101
